FAERS Safety Report 4384632-5 (Version None)
Quarter: 2004Q2

REPORT INFORMATION
  Report Type: 
  Country: None (occurrence: None)
  Receive Date: 20040625
  Receipt Date: 20030926
  Transmission Date: 20050107
  Serious: Yes (Other)
  Sender: FDA-Public Use
  Company Number: US-BRISTOL-MYERS SQUIBB COMPANY-12399556

PATIENT
  Sex: Female
  Weight: 74 kg

DRUGS (1)
  1. SINEMET [Suspect]
     Indication: PARKINSON'S DISEASE
     Route: 048
     Dates: start: 19990101

REACTIONS (2)
  - DECREASED ACTIVITY [None]
  - DRUG EFFECT DECREASED [None]
